FAERS Safety Report 6733112-8 (Version None)
Quarter: 2010Q2

REPORT INFORMATION
  Report Type: 
  Country: None (occurrence: None)
  Receive Date: 20100518
  Receipt Date: 20100509
  Transmission Date: 20101027
  Serious: Yes (Other)
  Sender: FDA-Public Use
  Company Number: 2010SP026368

PATIENT
  Age: 40 Year
  Sex: Female
  Weight: 55.3388 kg

DRUGS (3)
  1. REMERON [Suspect]
     Indication: IRRITABLE BOWEL SYNDROME
     Dosage: 15 MG;BID
     Dates: start: 20100401, end: 20100506
  2. REMERON [Suspect]
     Indication: SLEEP DISORDER
     Dosage: 15 MG;BID
     Dates: start: 20100401, end: 20100506
  3. WELLBUTRIN [Concomitant]

REACTIONS (7)
  - AMNESIA [None]
  - BLINDNESS [None]
  - CONFUSIONAL STATE [None]
  - DRY MOUTH [None]
  - HALLUCINATION [None]
  - MYDRIASIS [None]
  - VISION BLURRED [None]
